FAERS Safety Report 5703589-5 (Version None)
Quarter: 2008Q2

REPORT INFORMATION
  Report Type: 
  Country: None (occurrence: None)
  Receive Date: 20080408
  Receipt Date: 20080327
  Transmission Date: 20081010
  Serious: Yes (Other)
  Sender: FDA-Public Use
  Company Number: 2008S1000018

PATIENT
  Age: 1 Month
  Sex: Female
  Weight: 1.2 kg

DRUGS (4)
  1. NITRIC OXIDE [Suspect]
     Indication: LUNG DISORDER
     Dosage: 5 PPM;CONT;INH
     Route: 055
     Dates: start: 20070916, end: 20071005
  2. NITRIC OXIDE [Suspect]
     Indication: PROPHYLAXIS
     Dosage: 5 PPM;CONT;INH
     Route: 055
     Dates: start: 20070916, end: 20071005
  3. NITRIC OXIDE [Suspect]
  4. NITRIC OXIDE [Suspect]

REACTIONS (2)
  - NO THERAPEUTIC RESPONSE [None]
  - PATENT DUCTUS ARTERIOSUS [None]
